FAERS Safety Report 18132927 (Version 2)
Quarter: 2021Q1

REPORT INFORMATION
  Report Type: Spontaneous
  Country: US (occurrence: US)
  Receive Date: 20200811
  Receipt Date: 20210325
  Transmission Date: 20210419
  Serious: Yes (Other)
  Sender: FDA-Public Use
  Company Number: US-ASTRAZENECA-2020SE97685

PATIENT
  Age: 15289 Day
  Sex: Male
  Weight: 127.9 kg

DRUGS (51)
  1. CEPHALEXIN. [Concomitant]
     Active Substance: CEPHALEXIN
  2. METOPROLOL TARTRATE. [Concomitant]
     Active Substance: METOPROLOL TARTRATE
  3. LOSARTAN. [Concomitant]
     Active Substance: LOSARTAN
  4. SODIUM CHLORIDE. [Concomitant]
     Active Substance: SODIUM CHLORIDE
  5. DICLOFENAC [Concomitant]
     Active Substance: DICLOFENAC
  6. ACETAMINOPHEN. [Concomitant]
     Active Substance: ACETAMINOPHEN
     Indication: MIGRAINE
     Dates: start: 2016
  7. BENADRYL [Concomitant]
     Active Substance: DIPHENHYDRAMINE HYDROCHLORIDE
     Indication: MULTIPLE ALLERGIES
     Dates: start: 2001
  8. ALLERGY RELIEF [Concomitant]
     Indication: MULTIPLE ALLERGIES
     Dosage: 4 MG
     Dates: start: 2014
  9. ZANTAC [Concomitant]
     Active Substance: RANITIDINE HYDROCHLORIDE
     Dates: start: 2011
  10. ROLAIDS [Concomitant]
     Active Substance: CALCIUM CARBONATE\MAGNESIUM HYDROXIDE
     Dosage: DAILY AS NEEDED
     Dates: start: 1993, end: 2020
  11. WARFARIN [Concomitant]
     Active Substance: WARFARIN
  12. DILANTIN [Concomitant]
     Active Substance: PHENYTOIN
  13. NIMODIPINE. [Concomitant]
     Active Substance: NIMODIPINE
  14. PRILOSEC [Suspect]
     Active Substance: OMEPRAZOLE MAGNESIUM
     Indication: GASTROOESOPHAGEAL REFLUX DISEASE
     Route: 048
     Dates: start: 199301, end: 202001
  15. PRILOSEC [Suspect]
     Active Substance: OMEPRAZOLE MAGNESIUM
     Indication: GASTROOESOPHAGEAL REFLUX DISEASE
     Route: 048
     Dates: start: 1993, end: 2020
  16. IBUPROFEN. [Concomitant]
     Active Substance: IBUPROFEN
     Indication: MIGRAINE
     Dates: start: 2016
  17. MULTIVITAMINS [Concomitant]
     Active Substance: VITAMINS
     Indication: SUPPLEMENTATION THERAPY
     Dates: start: 2017
  18. METHOCARBAMOL. [Concomitant]
     Active Substance: METHOCARBAMOL
  19. DOXYCYCLINE HYCLATE. [Concomitant]
     Active Substance: DOXYCYCLINE HYCLATE
  20. WARFARIN SODIUM. [Concomitant]
     Active Substance: WARFARIN SODIUM
  21. FERROUS SULFATE. [Concomitant]
     Active Substance: FERROUS SULFATE
  22. MIRALAX [Concomitant]
     Active Substance: POLYETHYLENE GLYCOL 3350
  23. PREVACID [Suspect]
     Active Substance: LANSOPRAZOLE
     Indication: GASTROOESOPHAGEAL REFLUX DISEASE
     Route: 065
     Dates: start: 199301, end: 202001
  24. SIMVASTATIN. [Concomitant]
     Active Substance: SIMVASTATIN
     Indication: BLOOD CHOLESTEROL INCREASED
     Dosage: 20 MG
     Dates: start: 20121006, end: 20130913
  25. TUMS [Concomitant]
     Active Substance: CALCIUM CARBONATE
     Dosage: DAILY AS NEEDED
     Dates: start: 1993, end: 2020
  26. GABAPENTIN. [Concomitant]
     Active Substance: GABAPENTIN
  27. ASPIRIN. [Concomitant]
     Active Substance: ASPIRIN
  28. MAGNESIUM SULFATE. [Concomitant]
     Active Substance: MAGNESIUM SULFATE
  29. LISINOPRIL. [Concomitant]
     Active Substance: LISINOPRIL
     Indication: HYPERTENSION
     Dosage: 10 MG
     Dates: start: 20120626, end: 20121130
  30. LOSARTAN POTASSIUM. [Concomitant]
     Active Substance: LOSARTAN POTASSIUM
     Indication: HYPERTENSION
     Dosage: 50 MG
     Dates: start: 20130228
  31. VIAGRA [Concomitant]
     Active Substance: SILDENAFIL CITRATE
  32. CLONIDINE HYDROCHLORIDE. [Concomitant]
     Active Substance: CLONIDINE HYDROCHLORIDE
  33. OXYCODONE HYDROCHLORIDE. [Concomitant]
     Active Substance: OXYCODONE HYDROCHLORIDE
  34. BENZONATATE. [Concomitant]
     Active Substance: BENZONATATE
  35. POTASSIUM CHLORIDE. [Concomitant]
     Active Substance: POTASSIUM CHLORIDE
  36. AZITHROMYCIN ANHYDROUS. [Concomitant]
     Active Substance: AZITHROMYCIN ANHYDROUS
     Indication: ANTIBIOTIC THERAPY
     Dosage: 250 MG
     Dates: start: 20120229
  37. PREDNISONE. [Concomitant]
     Active Substance: PREDNISONE
     Indication: ARTHRITIS
     Dosage: 20 MG
     Dates: start: 20120229
  38. LORATADINE. [Concomitant]
     Active Substance: LORATADINE
  39. METFORMIN HYDROCHLORIDE. [Concomitant]
     Active Substance: METFORMIN HYDROCHLORIDE
  40. NABUMETONE. [Concomitant]
     Active Substance: NABUMETONE
  41. VENTOLIN HFA [Concomitant]
     Active Substance: ALBUTEROL SULFATE
  42. FLOVENT HFA [Concomitant]
     Active Substance: FLUTICASONE PROPIONATE
  43. PRILOSEC [Suspect]
     Active Substance: OMEPRAZOLE MAGNESIUM
     Indication: GASTROOESOPHAGEAL REFLUX DISEASE
     Dosage: GENERIC
     Route: 065
  44. PREVACID [Suspect]
     Active Substance: LANSOPRAZOLE
     Indication: GASTROOESOPHAGEAL REFLUX DISEASE
     Route: 065
     Dates: start: 1995, end: 2020
  45. RANITIDINE. [Concomitant]
     Active Substance: RANITIDINE
     Dosage: GENERIC
     Dates: start: 2011
  46. AMLODIPINE BESYLATE. [Concomitant]
     Active Substance: AMLODIPINE BESYLATE
  47. BACLOFEN. [Concomitant]
     Active Substance: BACLOFEN
  48. SYNTHROID [Concomitant]
     Active Substance: LEVOTHYROXINE SODIUM
  49. VITAMIN C [Concomitant]
     Active Substance: ASCORBIC ACID
  50. ATROVENT [Concomitant]
     Active Substance: IPRATROPIUM BROMIDE
  51. ATORVASTATIN [Concomitant]
     Active Substance: ATORVASTATIN

REACTIONS (3)
  - Gastrooesophageal reflux disease [Not Recovered/Not Resolved]
  - Renal failure [Unknown]
  - Chronic kidney disease [Not Recovered/Not Resolved]

NARRATIVE: CASE EVENT DATE: 19970827
